FAERS Safety Report 5377808-1 (Version None)
Quarter: 2007Q3

REPORT INFORMATION
  Report Type: 
  Country: None (occurrence: None)
  Receive Date: 20070703
  Receipt Date: 20070621
  Transmission Date: 20080115
  Serious: Yes (Hospitalization)
  Sender: FDA-Public Use
  Company Number: FR-GILEAD-2007-0012534

PATIENT
  Age: 50 Year
  Sex: Male

DRUGS (3)
  1. VIREAD [Suspect]
     Route: 048
     Dates: start: 20021120, end: 20070405
  2. EPIVIR [Concomitant]
     Route: 048
     Dates: start: 19960715
  3. VIRACEPT [Concomitant]
     Route: 048
     Dates: start: 20020812, end: 20070405

REACTIONS (8)
  - BACK PAIN [None]
  - BLOOD FOLATE DECREASED [None]
  - EXTRAPYRAMIDAL DISORDER [None]
  - FANCONI SYNDROME ACQUIRED [None]
  - MUSCULAR WEAKNESS [None]
  - NERVE CONDUCTION STUDIES ABNORMAL [None]
  - OSTEOMALACIA [None]
  - PAIN IN EXTREMITY [None]
